FAERS Safety Report 4642097-X (Version None)
Quarter: 2005Q2

REPORT INFORMATION
  Report Type: 
  Country: None (occurrence: None)
  Receive Date: 20050421
  Receipt Date: 20050421
  Transmission Date: 20051028
  Serious: Yes (Disabling)
  Sender: FDA-Public Use
  Company Number: None

PATIENT
  Sex: Female
  Weight: 86.637 kg

DRUGS (2)
  1. FENTANYL CITRATE [Suspect]
     Indication: FIBROMYALGIA
     Dosage: APPLY Q 3 DAYS
     Dates: start: 20050301
  2. FENTANYL CITRATE [Suspect]
     Indication: PAIN
     Dosage: APPLY Q 3 DAYS
     Dates: start: 20050301

REACTIONS (3)
  - ACTIVITIES OF DAILY LIVING IMPAIRED [None]
  - PAIN [None]
  - PHARMACEUTICAL PRODUCT COMPLAINT [None]
